FAERS Safety Report 10759764 (Version 1)
Quarter: 2015Q1

REPORT INFORMATION
  Report Type: Report from Study
  Country: BR (occurrence: BR)
  Receive Date: 20150203
  Receipt Date: 20150203
  Transmission Date: 20150721
  Serious: Yes (Other)
  Sender: FDA-Public Use
  Company Number: BR-BRISTOL-MYERS SQUIBB COMPANY-21587449

PATIENT
  Age: 58 Year
  Sex: Male
  Weight: 103 kg

DRUGS (2)
  1. FLUORO URACIL [Concomitant]
     Active Substance: FLUOROURACIL
     Indication: CHEMOTHERAPY
     Route: 065
  2. CETUXIMAB [Suspect]
     Active Substance: CETUXIMAB
     Indication: COLORECTAL CANCER METASTATIC
     Dosage: 1 DF, 1100 MG/1100 ML (1 IN 15 D)
     Route: 042
     Dates: start: 20140903

REACTIONS (10)
  - Drug-induced liver injury [Unknown]
  - Conjunctivitis [Not Recovered/Not Resolved]
  - Ascites [Not Recovered/Not Resolved]
  - White blood cell count abnormal [Recovered/Resolved]
  - Crying [Not Recovered/Not Resolved]
  - Liver disorder [Not Recovered/Not Resolved]
  - Nail disorder [Not Recovered/Not Resolved]
  - Skin reaction [Recovering/Resolving]
  - Pyrexia [Not Recovered/Not Resolved]
  - Weight decreased [Not Recovered/Not Resolved]

NARRATIVE: CASE EVENT DATE: 20150106
